FAERS Safety Report 21857429 (Version 8)
Quarter: 2024Q3

REPORT INFORMATION
  Report Type: Report from Study
  Country: GB (occurrence: GB)
  Receive Date: 20230113
  Receipt Date: 20240723
  Transmission Date: 20241017
  Serious: Yes (Other)
  Sender: NOVARTIS
  Company Number: GB-002147023-NVSC2023GB005558

PATIENT
  Age: 58 Year
  Sex: Female

DRUGS (6)
  1. MAYZENT [Suspect]
     Active Substance: SIPONIMOD
     Indication: Secondary progressive multiple sclerosis
     Dosage: 0.25 MG, ONCE/SINGLE (DAY 1)
     Route: 048
     Dates: start: 20230109
  2. MAYZENT [Suspect]
     Active Substance: SIPONIMOD
     Indication: Multiple sclerosis
     Dosage: UNK (DAY 2)
     Route: 048
  3. MAYZENT [Suspect]
     Active Substance: SIPONIMOD
     Dosage: UNK (DAY 3)
     Route: 048
  4. MAYZENT [Suspect]
     Active Substance: SIPONIMOD
     Dosage: UNK (DAY 4)
     Route: 048
  5. MAYZENT [Suspect]
     Active Substance: SIPONIMOD
     Dosage: UNK (DAY 5)
     Route: 048
  6. MAYZENT [Suspect]
     Active Substance: SIPONIMOD
     Dosage: 2 MG, QD
     Route: 048

REACTIONS (11)
  - Lower respiratory tract infection [Not Recovered/Not Resolved]
  - Cough [Unknown]
  - Presyncope [Recovered/Resolved]
  - Swelling of eyelid [Recovered/Resolved]
  - Chest pain [Recovering/Resolving]
  - Back pain [Unknown]
  - Pain [Unknown]
  - Arthralgia [Unknown]
  - Poor quality sleep [Unknown]
  - Dizziness [Unknown]
  - Pain in extremity [Unknown]

NARRATIVE: CASE EVENT DATE: 20230109
